FAERS Safety Report 25670681 (Version 1)
Quarter: 2025Q3

REPORT INFORMATION
  Report Type: Spontaneous
  Country: CN (occurrence: CN)
  Receive Date: 20250812
  Receipt Date: 20250812
  Transmission Date: 20251020
  Serious: Yes (Other)
  Sender: ROCHE
  Company Number: CN-CHEPLA-2025009282

PATIENT
  Age: 34 Year
  Sex: Female
  Weight: 73 kg

DRUGS (9)
  1. BEVACIZUMAB [Suspect]
     Active Substance: BEVACIZUMAB
     Indication: Fallopian tube neoplasm
     Dosage: D1 Q2W
     Route: 042
     Dates: start: 20250609, end: 20250609
  2. BEVACIZUMAB [Suspect]
     Active Substance: BEVACIZUMAB
     Dosage: APPROVAL NO. GYZZ S20200013
     Route: 042
     Dates: start: 20250710, end: 20250710
  3. CAPECITABINE [Suspect]
     Active Substance: CAPECITABINE
     Indication: Fallopian tube neoplasm
     Route: 048
     Dates: start: 20250610
  4. CAPECITABINE [Suspect]
     Active Substance: CAPECITABINE
     Route: 048
     Dates: start: 20250704, end: 20250717
  5. PACLITAXEL [Suspect]
     Active Substance: PACLITAXEL
     Indication: Fallopian tube neoplasm
     Dosage: D1 QW
     Route: 042
     Dates: start: 20250610, end: 20250610
  6. PACLITAXEL [Suspect]
     Active Substance: PACLITAXEL
     Dosage: D1 QW
     Route: 042
     Dates: start: 20250619, end: 20250619
  7. PACLITAXEL [Suspect]
     Active Substance: PACLITAXEL
     Dosage: D1 QW
     Route: 042
     Dates: start: 20250627, end: 20250627
  8. PACLITAXEL [Suspect]
     Active Substance: PACLITAXEL
     Dosage: APPROVAL NO. GYZZ H20193309
     Route: 042
     Dates: start: 20250704, end: 20250704
  9. PACLITAXEL [Suspect]
     Active Substance: PACLITAXEL
     Dosage: APPROVAL NO. GYZZ H20193309
     Route: 042
     Dates: start: 20250711, end: 20250711

REACTIONS (9)
  - White blood cell count decreased [Recovering/Resolving]
  - Neutrophil count decreased [Recovering/Resolving]
  - Pyrexia [Recovered/Resolved]
  - C-reactive protein increased [Not Recovered/Not Resolved]
  - Haemoglobin decreased [Not Recovered/Not Resolved]
  - Procalcitonin increased [Unknown]
  - Interleukin level increased [Unknown]
  - Asthenia [Recovering/Resolving]
  - Off label use [Unknown]

NARRATIVE: CASE EVENT DATE: 20250704
